FAERS Safety Report 5034863-6 (Version None)
Quarter: 2006Q2

REPORT INFORMATION
  Report Type: 
  Country: None (occurrence: None)
  Receive Date: 20060627
  Receipt Date: 20060620
  Transmission Date: 20061013
  Serious: Yes (Hospitalization)
  Sender: FDA-Public Use
  Company Number: PHBS2006FR09401

PATIENT
  Age: 33 Year
  Sex: Female

DRUGS (1)
  1. PARLODEL [Suspect]

REACTIONS (1)
  - MANIA [None]
